FAERS Safety Report 10786147 (Version 1)
Quarter: 2015Q1

REPORT INFORMATION
  Report Type: Spontaneous
  Country: US (occurrence: None)
  Receive Date: 20150210
  Receipt Date: 20150210
  Transmission Date: 20150721
  Serious: Yes (Other)
  Sender: FDA-Public Use
  Company Number: None

PATIENT
  Age: 41 Year
  Sex: Female
  Weight: 53.07 kg

DRUGS (2)
  1. LYSTEDA [Concomitant]
     Active Substance: TRANEXAMIC ACID
  2. TRANEXAMIC ACID. [Suspect]
     Active Substance: TRANEXAMIC ACID
     Indication: MENORRHAGIA
     Dosage: 680 MG TID PO X 5D/MO
     Route: 048
     Dates: start: 201407

REACTIONS (1)
  - No therapeutic response [None]

NARRATIVE: CASE EVENT DATE: 201407
